FAERS Safety Report 7636986-1 (Version None)
Quarter: 2011Q3

REPORT INFORMATION
  Report Type: 
  Country: None (occurrence: None)
  Receive Date: 20110722
  Receipt Date: 20110722
  Transmission Date: 20111222
  Serious: Yes (Other)
  Sender: FDA-Public Use
  Company Number: None

PATIENT
  Sex: Female

DRUGS (1)
  1. ALOXI [Suspect]
     Dosage: 0.25MG D1,8 Q21D IV
     Route: 042
     Dates: start: 20110524, end: 20110705

REACTIONS (1)
  - HEADACHE [None]
